FAERS Safety Report 21180210 (Version 1)
Quarter: 2022Q3

REPORT INFORMATION
  Report Type: Report from Study
  Country: CO (occurrence: CO)
  Receive Date: 20220806
  Receipt Date: 20220806
  Transmission Date: 20221027
  Serious: Yes (Other)
  Sender: FDA-Public Use
  Company Number: CO-ABBVIE-22K-036-4491311-00

PATIENT
  Sex: Female
  Weight: 67 kg

DRUGS (3)
  1. HUMIRA [Suspect]
     Active Substance: ADALIMUMAB
     Indication: Rheumatoid arthritis
     Route: 058
     Dates: start: 20141219
  2. HUMIRA [Suspect]
     Active Substance: ADALIMUMAB
     Indication: Rheumatoid arthritis
     Route: 058
  3. ALBISAN [Concomitant]
     Indication: Hiatus hernia
     Route: 048
     Dates: start: 2015

REACTIONS (14)
  - Memory impairment [Not Recovered/Not Resolved]
  - Peripheral vascular disorder [Recovering/Resolving]
  - Hiatus hernia [Not Recovered/Not Resolved]
  - Eye disorder [Unknown]
  - Blood disorder [Recovering/Resolving]
  - Vitreous floaters [Not Recovered/Not Resolved]
  - Vitreous detachment [Not Recovered/Not Resolved]
  - Gastrooesophageal reflux disease [Not Recovered/Not Resolved]
  - Nail disorder [Not Recovered/Not Resolved]
  - Nail discolouration [Unknown]
  - Onychomycosis [Not Recovered/Not Resolved]
  - Headache [Not Recovered/Not Resolved]
  - Paraesthesia [Recovering/Resolving]
  - Hepatic infection fungal [Unknown]

NARRATIVE: CASE EVENT DATE: 20180101
